FAERS Safety Report 7184064-0 (Version None)
Quarter: 2010Q4

REPORT INFORMATION
  Report Type: 
  Country: None (occurrence: None)
  Receive Date: 20101222
  Receipt Date: 20101209
  Transmission Date: 20110411
  Serious: Yes (Other)
  Sender: FDA-Public Use
  Company Number: PHEH2009US18332

PATIENT
  Sex: Female

DRUGS (23)
  1. RECLAST [Suspect]
     Indication: OSTEOPOROSIS
     Dosage: 5MG, ONCE
     Dates: start: 20091215, end: 20091215
  2. VICODIN [Concomitant]
     Indication: PAIN
     Dosage: 5MG/500MG, ONE AS NEEDED TWICE DAILY
     Route: 048
  3. PLAVIX [Concomitant]
     Dosage: 75 MG, QD
  4. LISINOPRIL [Concomitant]
     Dosage: 10 MG, QD
     Route: 048
  5. LEXAPRO [Concomitant]
     Dosage: 20 MG, QD
     Route: 048
  6. DUONEB [Concomitant]
     Dosage: 3MG/3ML, 3ML FOUR TIMES DAILY
  7. PULMICORT [Concomitant]
     Dosage: 1/2 DOSE INHALATION, 4 TIMES DAILY
  8. RANITIDINE [Concomitant]
     Dosage: 150 MG, BID
     Route: 048
  9. BENADRYL ^ACHE^ [Concomitant]
  10. ASPIRIN [Concomitant]
     Dosage: 325MG, DAILY
     Route: 048
  11. VITAMINS [Concomitant]
     Route: 048
  12. NITROGLYCERIN ^A.L.^ [Concomitant]
  13. CINNAMON [Concomitant]
     Dosage: 500MG, AS DIRECTED
     Route: 048
  14. LORAZEPAM [Concomitant]
     Dosage: 0.5MG, 1 FOUR TIMES DAILY AS NEEDED AND 2 AT BEDTIME
     Route: 048
  15. ALEVE [Concomitant]
  16. DARVOCET-N 100 [Concomitant]
     Indication: PAIN
     Dosage: 100MG/650MG, ONE AS NEEDED EVERY 4-6 HRS
     Route: 048
  17. BENADRYL [Concomitant]
     Dosage: 25MG, EVERY OTHER DAY AS NEEDED
     Route: 048
  18. NITRO-DUR [Concomitant]
     Dosage: 0.4MG, ONCE A DAY
     Route: 062
  19. COMBIVENT                               /GFR/ [Concomitant]
     Dosage: 2 PUFFS, SIX TIMES A DAY
  20. OXYGEN [Concomitant]
  21. CHERATUSSIN AC [Concomitant]
     Dosage: 100MG/10MG, 2 TSP EVERY 4-6 HRS
  22. NITROSTAT [Concomitant]
     Dosage: 0.4MG, EVERY 8 HRS
     Route: 060
  23. NIACIN [Concomitant]
     Dosage: 250MG, AS DIRECTED
     Route: 048

REACTIONS (9)
  - ARTHRALGIA [None]
  - BACK PAIN [None]
  - BURNING SENSATION [None]
  - HIP FRACTURE [None]
  - LOWER LIMB FRACTURE [None]
  - MALAISE [None]
  - MUSCULOSKELETAL STIFFNESS [None]
  - MYALGIA [None]
  - SPINAL FRACTURE [None]
